FAERS Safety Report 16846736 (Version 1)
Quarter: 2019Q3

REPORT INFORMATION
  Report Type: Spontaneous
  Country: US (occurrence: US)
  Receive Date: 20190924
  Receipt Date: 20190924
  Transmission Date: 20191005
  Serious: No
  Sender: FDA-Public Use
  Company Number: US-SHIRE-US201931397

PATIENT
  Age: 29 Year
  Sex: Female

DRUGS (2)
  1. GAMMAGARD LIQUID [Suspect]
     Active Substance: HUMAN IMMUNOGLOBULIN G
     Dosage: 60 GRAM, 1X A MONTH
     Route: 042
     Dates: start: 20190703
  2. GAMMAGARD LIQUID [Suspect]
     Active Substance: HUMAN IMMUNOGLOBULIN G
     Indication: EVANS SYNDROME
     Dosage: 60 GRAM, 1X A MONTH
     Route: 042

REACTIONS (3)
  - Product availability issue [Unknown]
  - Inappropriate schedule of product administration [Unknown]
  - Drug hypersensitivity [Unknown]
